FAERS Safety Report 5350709-0 (Version None)
Quarter: 2007Q2

REPORT INFORMATION
  Report Type: 
  Country: None (occurrence: None)
  Receive Date: 20070608
  Receipt Date: 20070531
  Transmission Date: 20071010
  Serious: Yes (Other)
  Sender: FDA-Public Use
  Company Number: US-ASTRAZENECA-2006UW08283

PATIENT
  Sex: Female
  Weight: 93.6 kg

DRUGS (1)
  1. SEROQUEL [Suspect]
     Route: 048
     Dates: start: 20030101, end: 20051001

REACTIONS (2)
  - DIABETES MELLITUS [None]
  - PANCREATITIS [None]
